FAERS Safety Report 7867203 (Version 3)
Quarter: 2013Q2

REPORT INFORMATION
  Report Type: Spontaneous
  Country: US (occurrence: US)
  Receive Date: 20110323
  Receipt Date: 20130624
  Transmission Date: 20140414
  Serious: Yes (Disabling, Other)
  Sender: FDA-Public Use
  Company Number: US-JNJFOC-20100806242

PATIENT
  Sex: Female

DRUGS (2)
  1. LEVAQUIN [Suspect]
     Indication: ASTHMA
     Route: 048
     Dates: start: 20070101, end: 20090506
  2. LEVAQUIN [Suspect]
     Indication: INFECTION
     Route: 048
     Dates: start: 20070101, end: 20090506

REACTIONS (2)
  - Rotator cuff syndrome [Unknown]
  - Rotator cuff syndrome [Unknown]
